FAERS Safety Report 23041574 (Version 1)
Quarter: 2023Q4

REPORT INFORMATION
  Report Type: Spontaneous
  Country: DE (occurrence: DE)
  Receive Date: 20231007
  Receipt Date: 20231007
  Transmission Date: 20240109
  Serious: Yes (Death)
  Sender: FDA-Public Use
  Company Number: DE-EMA-DD-20230928-3736665-141556

PATIENT
  Age: 61 Year
  Sex: Female
  Weight: 72 kg

DRUGS (2)
  1. DOCETAXEL [Suspect]
     Active Substance: DOCETAXEL
     Indication: Lung adenocarcinoma
     Dosage: FORMULATION- LIQUID, TOTAL DAILY DOSE AT ONSET- 75MG/M2 BODY SURFACE AREA (BSA).
     Route: 042
     Dates: start: 20190110
  2. NINTEDANIB [Suspect]
     Active Substance: NINTEDANIB
     Indication: Lung adenocarcinoma
     Dosage: 400 MG, QD
     Route: 048
     Dates: start: 20190111

REACTIONS (1)
  - Haematoma [Fatal]
